FAERS Safety Report 5387453-X (Version None)
Quarter: 2007Q2

REPORT INFORMATION
  Report Type: 
  Country: None (occurrence: None)
  Receive Date: 20070622
  Receipt Date: 20070622
  Transmission Date: 20071010
  Serious: Yes (Other)
  Sender: FDA-Public Use
  Company Number: None

PATIENT
  Age: 35 Year
  Sex: Male
  Weight: 108.8633 kg

DRUGS (1)
  1. STERILID THERA-TEARS [Suspect]
     Indication: DRY EYE
     Dosage: SAMPLE PACKET ONCE TOP
     Route: 061
     Dates: start: 20070615, end: 20070615

REACTIONS (2)
  - EYE IRRITATION [None]
  - PHARMACEUTICAL PRODUCT COMPLAINT [None]
